FAERS Safety Report 11930998 (Version 2)
Quarter: 2016Q4

REPORT INFORMATION
  Report Type: Spontaneous
  Country: US (occurrence: US)
  Receive Date: 20160120
  Receipt Date: 20161222
  Transmission Date: 20170206
  Serious: No
  Sender: FDA-Public Use
  Company Number: US-INCYTE CORPORATION-2015IN004360

PATIENT
  Sex: Female

DRUGS (8)
  1. DURAGESIC [Concomitant]
     Active Substance: FENTANYL
  2. JAKAFI [Suspect]
     Active Substance: RUXOLITINIB
     Indication: MYELOFIBROSIS
     Dosage: 10 MG, QD
     Route: 048
     Dates: start: 2015
  3. ASPIRIN                            /00002701/ [Concomitant]
     Active Substance: ASPIRIN
  4. CELEXA                             /01400501/ [Concomitant]
     Active Substance: CELECOXIB
  5. GABAPENTIN. [Concomitant]
     Active Substance: GABAPENTIN
  6. WELLBUTRIN [Concomitant]
     Active Substance: BUPROPION HYDROCHLORIDE
  7. FLOMAX [Concomitant]
     Active Substance: TAMSULOSIN HYDROCHLORIDE
  8. JAKAFI [Suspect]
     Active Substance: RUXOLITINIB
     Dosage: 10 MG, QD
     Route: 048
     Dates: start: 20160701

REACTIONS (8)
  - Bone pain [Unknown]
  - Urine output decreased [Unknown]
  - Diarrhoea [Unknown]
  - Constipation [Unknown]
  - Muscle spasms [Unknown]
  - Back pain [Unknown]
  - Micturition urgency [Unknown]
  - Splenomegaly [Unknown]

NARRATIVE: CASE EVENT DATE: 2015
